FAERS Safety Report 24835247 (Version 2)
Quarter: 2025Q1

REPORT INFORMATION
  Report Type: Spontaneous
  Country: US (occurrence: US)
  Receive Date: 20250113
  Receipt Date: 20250123
  Transmission Date: 20250409
  Serious: Yes (Death, Other)
  Sender: LABORATOIRES SERB
  Company Number: US-SERB S.A.S.-2168946

PATIENT
  Age: 70 Year
  Sex: Female

DRUGS (4)
  1. VISTOGARD [Suspect]
     Active Substance: URIDINE TRIACETATE
     Indication: Toxicity to various agents
     Dates: start: 20210201
  2. VISTOGARD [Suspect]
     Active Substance: URIDINE TRIACETATE
     Indication: Dihydropyrimidine dehydrogenase deficiency
  3. XELODA [Suspect]
     Active Substance: CAPECITABINE
     Dates: start: 20210122
  4. MORPHINE SULFATE [Suspect]
     Active Substance: MORPHINE SULFATE
     Dates: start: 20210122

REACTIONS (7)
  - Death [Fatal]
  - Complication associated with device [Fatal]
  - Treatment delayed [Fatal]
  - Drug ineffective [Fatal]
  - Inappropriate schedule of product administration [Fatal]
  - Incorrect route of product administration [Fatal]
  - Bone marrow failure [Fatal]

NARRATIVE: CASE EVENT DATE: 20210222
